FAERS Safety Report 14606965 (Version 1)
Quarter: 2018Q1

REPORT INFORMATION
  Report Type: Spontaneous
  Country: US (occurrence: US)
  Receive Date: 20180306
  Receipt Date: 20180306
  Transmission Date: 20180509
  Serious: Yes (Other)
  Sender: FDA-Public Use
  Company Number: None

PATIENT
  Age: 64 Year
  Sex: Female
  Weight: 77.11 kg

DRUGS (12)
  1. VITAMIN D [Concomitant]
     Active Substance: CHOLECALCIFEROL
  2. DOXEPIN [Concomitant]
     Active Substance: DOXEPIN
  3. VITAMIN E [Concomitant]
     Active Substance: .ALPHA.-TOCOPHEROL
  4. FLEXERIL [Concomitant]
     Active Substance: CYCLOBENZAPRINE HYDROCHLORIDE
  5. ECHINACEA [Concomitant]
     Active Substance: ECHINACEA, UNSPECIFIED
  6. COQ10 [Concomitant]
     Active Substance: UBIDECARENONE
  7. VITAMIN C [Concomitant]
     Active Substance: ASCORBIC ACID
  8. AVAPRO [Concomitant]
     Active Substance: IRBESARTAN
  9. FISH OIL [Concomitant]
     Active Substance: FISH OIL
  10. ELIDEL [Suspect]
     Active Substance: PIMECROLIMUS
     Indication: RASH
     Dosage: TWICE DAILY APPLY SMALL AMOUNT TO RASH ON WRIST
     Route: 061
     Dates: start: 20171221, end: 20171231
  11. STELAZINE [Concomitant]
     Active Substance: TRIFLUOPERAZINE HYDROCHLORIDE
  12. VITAMIN B COMPLEX [Concomitant]
     Active Substance: CYANOCOBALAMIN\DEXPANTHENOL\NIACINAMIDE\PYRIDOXINE HYDROCHLORIDE\RIBOFLAVIN 5^-PHOSPHATE SODIUM\THIAMINE HYDROCHLORIDE\VITAMIN B COMPLEX

REACTIONS (11)
  - Herpes virus infection [None]
  - Peripheral swelling [None]
  - Skin disorder [None]
  - Laceration [None]
  - Abscess [None]
  - Rash [None]
  - Headache [None]
  - Ulcer [None]
  - Nasopharyngitis [None]
  - Malaise [None]
  - Impaired healing [None]

NARRATIVE: CASE EVENT DATE: 20171221
